FAERS Safety Report 21534905 (Version 1)
Quarter: 2022Q4

REPORT INFORMATION
  Report Type: Spontaneous
  Country: IL (occurrence: IL)
  Receive Date: 20221101
  Receipt Date: 20221101
  Transmission Date: 20230113
  Serious: No
  Sender: FDA-Public Use
  Company Number: IL-BioHaven Pharmaceuticals-2022BHV001601

PATIENT
  Age: 47 Year
  Sex: Female

DRUGS (1)
  1. NURTEC ODT [Suspect]
     Active Substance: RIMEGEPANT SULFATE
     Indication: Migraine with aura
     Dosage: ONE TABLET 75 MG EVERY DAY
     Route: 065

REACTIONS (1)
  - Off label use [Unknown]
